FAERS Safety Report 21213719 (Version 1)
Quarter: 2022Q3

REPORT INFORMATION
  Report Type: Spontaneous
  Country: US (occurrence: US)
  Receive Date: 20220816
  Receipt Date: 20220816
  Transmission Date: 20221026
  Serious: Yes (Hospitalization, Other)
  Sender: FDA-Public Use
  Company Number: US-APOTEX-2022AP010919

PATIENT
  Age: 42 Year
  Sex: Female

DRUGS (4)
  1. DULOXETINE [Interacting]
     Active Substance: DULOXETINE
     Indication: Product used for unknown indication
     Dosage: 60 MILLIGRAM, BID
     Route: 065
  2. NORTRIPTYLINE [Interacting]
     Active Substance: NORTRIPTYLINE
     Indication: Product used for unknown indication
     Dosage: 150 MILLIGRAM, Q.H.S.
     Route: 065
  3. METOCLOPRAMIDE [Interacting]
     Active Substance: METOCLOPRAMIDE
     Indication: Product used for unknown indication
     Dosage: 10 MILLIGRAM, QID, AS NEEDED
     Route: 065
  4. METOCLOPRAMIDE [Interacting]
     Active Substance: METOCLOPRAMIDE
     Dosage: 10 MILLIGRAM, QID
     Route: 042

REACTIONS (5)
  - Dystonia [Recovered/Resolved]
  - Drug interaction [Recovered/Resolved]
  - Drug-disease interaction [Recovered/Resolved]
  - Drug level increased [Recovered/Resolved]
  - Serotonin syndrome [Recovered/Resolved]
